FAERS Safety Report 6603436-3 (Version None)
Quarter: 2010Q1

REPORT INFORMATION
  Report Type: 
  Country: None (occurrence: None)
  Receive Date: 20100226
  Receipt Date: 20090516
  Transmission Date: 20100710
  Serious: Yes (Hospitalization)
  Sender: FDA-Public Use
  Company Number: A0785407A

PATIENT
  Age: 78 Year
  Sex: Female
  Weight: 68.2 kg

DRUGS (2)
  1. VALTREX [Suspect]
     Indication: HERPES ZOSTER
     Dosage: 1G THREE TIMES PER DAY
     Route: 048
  2. LYRICA [Concomitant]
     Dosage: 25MG THREE TIMES PER DAY

REACTIONS (4)
  - ATAXIA [None]
  - DIPLOPIA [None]
  - DYSARTHRIA [None]
  - RENAL FAILURE ACUTE [None]
